FAERS Safety Report 23683056 (Version 5)
Quarter: 2025Q2

REPORT INFORMATION
  Report Type: Spontaneous
  Country: GB (occurrence: GB)
  Receive Date: 20240328
  Receipt Date: 20250613
  Transmission Date: 20250717
  Serious: Yes (Hospitalization, Other)
  Sender: TEVA
  Company Number: None

PATIENT
  Age: 68 Year
  Sex: Female
  Weight: 92 kg

DRUGS (44)
  1. OMEPRAZOLE [Suspect]
     Active Substance: OMEPRAZOLE
     Indication: Abdominal discomfort
     Dosage: 20 MG, QH (480 MILLIGRAM DAILY; 20 MG, 2X/DAY)
     Route: 065
     Dates: start: 20100917
  2. OMEPRAZOLE [Suspect]
     Active Substance: OMEPRAZOLE
     Indication: Abdominal discomfort
     Dosage: 40 MG, QD (20 MG, 2X/DAY)
     Route: 065
     Dates: start: 20100917
  3. OMEPRAZOLE [Suspect]
     Active Substance: OMEPRAZOLE
     Indication: Abdominal discomfort
     Dosage: 80 MG, QD
     Route: 065
     Dates: start: 20100917
  4. OMEPRAZOLE [Suspect]
     Active Substance: OMEPRAZOLE
     Indication: Abdominal discomfort
     Dosage: 20 MG, QD
     Route: 065
     Dates: start: 20100917
  5. OMEPRAZOLE [Suspect]
     Active Substance: OMEPRAZOLE
     Indication: Abdominal discomfort
     Dosage: 80 MG, QD
     Route: 065
     Dates: start: 20100917
  6. THEOPHYLLINE [Concomitant]
     Active Substance: THEOPHYLLINE
     Indication: Depression
     Dosage: 750 MG, QD
     Route: 065
  7. CHARCOAL ACTIVATED [Suspect]
     Active Substance: ACTIVATED CHARCOAL
     Indication: Product used for unknown indication
     Dosage: 750 MG, QD
     Route: 065
  8. GUANIDINE [Suspect]
     Active Substance: GUANIDINE
     Indication: Abdominal discomfort
     Dosage: 1,3-DIPHENYLGUANIDINE, 750 MG DAILY
     Route: 065
  9. CABERGOLINE [Concomitant]
     Active Substance: CABERGOLINE
     Indication: Empty sella syndrome
  10. FOLIC ACID [Concomitant]
     Active Substance: FOLIC ACID
     Indication: Product used for unknown indication
  11. ORUVAIL [Concomitant]
     Active Substance: KETOPROFEN
     Indication: Empty sella syndrome
  12. DOXYCYCLINE [Concomitant]
     Active Substance: DOXYCYCLINE
     Indication: Pulmonary pain
  13. PHYLLOCONTIN [Suspect]
     Active Substance: AMINOPHYLLINE
     Indication: Product used for unknown indication
     Dosage: 400 MG, QD
     Route: 065
     Dates: start: 20100917
  14. CARBAMAZEPINE [Suspect]
     Active Substance: CARBAMAZEPINE
     Indication: Depression
     Dosage: 750 MG, QD (TABLET)
     Route: 065
     Dates: start: 20100917
  15. CARBAMAZEPINE [Suspect]
     Active Substance: CARBAMAZEPINE
     Indication: Depression
     Dosage: 1000 MG, QD
     Route: 065
     Dates: start: 20100917
  16. CARBAMAZEPINE [Suspect]
     Active Substance: CARBAMAZEPINE
     Indication: Depression
     Dosage: 750 MG, QD
     Route: 065
     Dates: start: 20200917
  17. LACTOBACILLUS RHAMNOSUS [Suspect]
     Active Substance: LACTOBACILLUS RHAMNOSUS
     Indication: Depression
     Route: 065
  18. ACTIVATED CHARCOAL [Concomitant]
     Active Substance: ACTIVATED CHARCOAL
     Indication: Product used for unknown indication
     Dosage: 750 MG, QD
  19. CHARCOAL ACTIVATED [Concomitant]
     Active Substance: ACTIVATED CHARCOAL
     Indication: Product used for unknown indication
  20. CARBOCYSTEINE [Suspect]
     Active Substance: CARBOCYSTEINE
     Indication: Rheumatoid arthritis
     Dosage: 750 MG, QD
     Route: 065
     Dates: start: 20100917
  21. IRBESARTAN [Suspect]
     Active Substance: IRBESARTAN
     Indication: Abdominal discomfort
     Dosage: 150 G, QD
     Route: 065
     Dates: start: 20100912
  22. EZETIMIBE [Concomitant]
     Active Substance: EZETIMIBE
     Indication: Product used for unknown indication
     Dosage: 50 MG, QW  MYCLIC PEN
     Dates: start: 20100917
  23. SIMETHICONE (DIMETHICONE) [Suspect]
     Active Substance: DIMETHICONE
     Indication: Product used for unknown indication
     Route: 065
  24. SULFAGUANIDINE [Suspect]
     Active Substance: SULFAGUANIDINE
     Indication: Abdominal discomfort
     Dosage: 750 MG, QD
     Route: 065
  25. CETIRIZINE [Concomitant]
     Active Substance: CETIRIZINE HYDROCHLORIDE
     Indication: Abdominal discomfort
     Route: 065
  26. ENBREL [Suspect]
     Active Substance: ETANERCEPT
     Indication: Rheumatoid arthritis
     Dosage: 50 MG, QW, MYCLIC PEN
     Route: 058
     Dates: start: 20100917
  27. CIPROFLOXACIN HYDROCHLORIDE [Suspect]
     Active Substance: CIPROFLOXACIN HYDROCHLORIDE
     Indication: Rheumatoid arthritis
     Dosage: 1000 MG, QD
     Route: 065
     Dates: start: 20100917
  28. AMINOPHYLLINE [Suspect]
     Active Substance: AMINOPHYLLINE
     Indication: Product used for unknown indication
     Dosage: 400 MG, QD
     Route: 065
     Dates: start: 20100917
  29. THEOPHYLLINE [Suspect]
     Active Substance: THEOPHYLLINE
     Indication: Depression
     Dosage: 750 MG, QD
     Route: 065
  30. ZINC [Suspect]
     Active Substance: ZINC
     Indication: Depression
     Dosage: 750 MG (DIETHYLDITHIOCARBAMATE)
     Route: 065
  31. BENDROFLUMETHIAZIDE [Concomitant]
     Active Substance: BENDROFLUMETHIAZIDE
     Indication: Depression
     Route: 065
  32. BENDROFLUMETHIAZIDE [Concomitant]
     Active Substance: BENDROFLUMETHIAZIDE
     Indication: Depression
     Route: 065
  33. BENDROFLUMETHIAZIDE [Concomitant]
     Active Substance: BENDROFLUMETHIAZIDE
     Indication: Depression
     Route: 065
  34. VENLAFAXINE HYDROCHLORIDE [Suspect]
     Active Substance: VENLAFAXINE HYDROCHLORIDE
     Indication: Depression
     Dosage: VENSIR XL PROLONGED RELEASE, 225 MG, DAILY (PROLONGED RELEASE)
     Route: 065
  35. BIFIDOBACTERIUM LONGUM [Suspect]
     Active Substance: BIFIDOBACTERIUM LONGUM
     Indication: Abdominal discomfort
     Route: 065
  36. VENLAFAXINE [Suspect]
     Active Substance: VENLAFAXINE HYDROCHLORIDE
     Indication: Product used for unknown indication
     Dosage: 225 MG, QD
     Route: 065
  37. LEVOTHYROXINE [Concomitant]
     Active Substance: LEVOTHYROXINE
     Indication: Abdominal discomfort
     Route: 016
  38. METHOTREXATE [Suspect]
     Active Substance: METHOTREXATE
     Indication: Rheumatoid arthritis
     Dosage: 18 MG, QW
     Route: 065
  39. METHOTREXATE [Suspect]
     Active Substance: METHOTREXATE
     Indication: Rheumatoid arthritis
     Dosage: 17.5 MILLIGRAM, Q.W., UNK UNK, Q.W., WEEKLY, AT 17.5 (UNKNOWN UNIT),
     Route: 065
     Dates: start: 20100917
  40. METHOTREXATE [Suspect]
     Active Substance: METHOTREXATE
     Indication: Rheumatoid arthritis
     Dosage: UNK, QW
     Route: 065
  41. CIPROFLOXACIN [Suspect]
     Active Substance: CIPROFLOXACIN
     Indication: Depression
     Dosage: 1000 MG, DAILY
     Route: 065
     Dates: start: 20100917
  42. PROBIOTICS NOS [Suspect]
     Active Substance: PROBIOTICS NOS
     Indication: Depression
     Route: 065
  43. VENLAFAXINE [Suspect]
     Active Substance: VENLAFAXINE HYDROCHLORIDE
     Indication: Depression
     Dosage: 225 MG, DAILY, ONCE A DAY, PROLONGED RELEASE, VENLAFAXINE HYDROCHLORIDE
     Route: 065
  44. AMOXICILLIN [Suspect]
     Active Substance: AMOXICILLIN
     Indication: Abdominal discomfort
     Route: 065

REACTIONS (15)
  - Pulmonary pain [Unknown]
  - Drug abuse [Unknown]
  - Off label use [Unknown]
  - Pulmonary pain [Unknown]
  - Rash [Not Recovered/Not Resolved]
  - Overdose [Unknown]
  - Lower respiratory tract infection [Not Recovered/Not Resolved]
  - Product dose omission issue [Unknown]
  - Knee arthroplasty [Unknown]
  - Obesity [Unknown]
  - Intentional product misuse [Unknown]
  - Intentional product misuse [Unknown]
  - Amyloid arthropathy [Unknown]
  - Abdominal discomfort [Unknown]
  - Arthropathy [Unknown]

NARRATIVE: CASE EVENT DATE: 20201001
